FAERS Safety Report 14615511 (Version 3)
Quarter: 2019Q1

REPORT INFORMATION
  Report Type: Spontaneous
  Country: IT (occurrence: IT)
  Receive Date: 20180308
  Receipt Date: 20190215
  Transmission Date: 20190417
  Serious: Yes (Hospitalization)
  Sender: FDA-Public Use
  Company Number: IT-ACCORD-064293

PATIENT
  Age: 89 Year
  Sex: Male

DRUGS (8)
  1. ALLOPURINOL. [Suspect]
     Active Substance: ALLOPURINOL
     Indication: PRODUCT USED FOR UNKNOWN INDICATION
     Route: 048
  2. BICALUTAMIDE. [Suspect]
     Active Substance: BICALUTAMIDE
     Indication: PROSTATE CANCER
     Route: 048
     Dates: start: 20160108, end: 20180202
  3. DELTACORTENE [Concomitant]
     Active Substance: PREDNISONE
     Dosage: ALSO RECEIVED 2.5 MG 2 TIMES PER DAY(S)
     Route: 048
  4. PARIET [Concomitant]
     Active Substance: RABEPRAZOLE SODIUM
     Route: 048
  5. REVOLADE - NOVARTIS EUROPHARM LTD [Suspect]
     Active Substance: ELTROMBOPAG OLAMINE
     Indication: IMMUNE THROMBOCYTOPENIC PURPURA
     Route: 048
     Dates: start: 20171212, end: 20180202
  6. ADENURIC [Concomitant]
     Active Substance: FEBUXOSTAT
     Route: 048
  7. KANRENOL [Concomitant]
     Active Substance: CANRENOATE POTASSIUM
     Route: 048
  8. FUROSEMIDE. [Concomitant]
     Active Substance: FUROSEMIDE
     Route: 048

REACTIONS (1)
  - Hepatitis acute [Recovering/Resolving]

NARRATIVE: CASE EVENT DATE: 20180123
